FAERS Safety Report 6430272-3 (Version None)
Quarter: 2009Q4

REPORT INFORMATION
  Report Type: 
  Country: None (occurrence: None)
  Receive Date: 20091104
  Receipt Date: 20091104
  Transmission Date: 20100525
  Serious: Yes (Hospitalization)
  Sender: FDA-Public Use
  Company Number: None

PATIENT
  Age: 46 Year
  Sex: Female
  Weight: 77.1115 kg

DRUGS (8)
  1. CIPROFLAXACIN [Suspect]
     Indication: SALMONELLOSIS
     Dosage: 500 MG TAB BID PO
     Route: 048
     Dates: start: 20091025, end: 20091027
  2. CIPRO [Suspect]
     Dosage: 500 MG TAB BID PO
     Route: 048
     Dates: start: 20091027, end: 20091028
  3. YAZ [Concomitant]
  4. PROZAC [Concomitant]
  5. REQUIP [Concomitant]
  6. CLONAZEPAM [Concomitant]
  7. PROSOM [Concomitant]
  8. LOMOTIL [Concomitant]

REACTIONS (5)
  - APHASIA [None]
  - CONFUSIONAL STATE [None]
  - DYSPHEMIA [None]
  - PRODUCT QUALITY ISSUE [None]
  - SPEECH DISORDER [None]
